FAERS Safety Report 8169124-X (Version None)
Quarter: 2012Q1

REPORT INFORMATION
  Report Type: 
  Country: None (occurrence: None)
  Receive Date: 20120227
  Receipt Date: 20120221
  Transmission Date: 20120608
  Serious: Yes (Hospitalization)
  Sender: FDA-Public Use
  Company Number: FR-B.I. PHARMACEUTICALS,INC./RIDGEFIELD-2012-FF-00221FF

PATIENT
  Age: 52 Year
  Sex: Female

DRUGS (3)
  1. FLURBIPROFEN [Suspect]
     Indication: INTERCOSTAL NEURALGIA
     Route: 048
     Dates: start: 20111211, end: 20111217
  2. MOBIC [Suspect]
     Indication: INTERCOSTAL NEURALGIA
     Route: 030
     Dates: start: 20111115
  3. OLMESARTAN MEDOXOMIL AND HYDROCHLOROTHIZIDE [Concomitant]
     Route: 048

REACTIONS (5)
  - NAUSEA [None]
  - HYPOTENSION [None]
  - DRUG RASH WITH EOSINOPHILIA AND SYSTEMIC SYMPTOMS [None]
  - VOMITING [None]
  - HYPERTHERMIA [None]
